FAERS Safety Report 21257129 (Version 1)
Quarter: 2022Q3

REPORT INFORMATION
  Report Type: Report from Study
  Country: US (occurrence: US)
  Receive Date: 20220826
  Receipt Date: 20220826
  Transmission Date: 20221026
  Serious: Yes (Other)
  Sender: FDA-Public Use
  Company Number: US-AMGEN-USASL2022138813

PATIENT
  Age: 38 Year
  Sex: Male

DRUGS (2)
  1. OTEZLA [Suspect]
     Active Substance: APREMILAST
     Indication: Psoriasis
     Dosage: 10MG IN THE AM AND 20MG IN PM
     Route: 065
     Dates: start: 2022
  2. OTEZLA [Suspect]
     Active Substance: APREMILAST
     Dosage: 30 MILLIGRAM, BID
     Route: 065
     Dates: start: 2022

REACTIONS (7)
  - Angina pectoris [Unknown]
  - Suicidal ideation [Unknown]
  - Depression [Unknown]
  - Illness [Unknown]
  - Pain [Unknown]
  - Decreased appetite [Unknown]
  - Vomiting [Unknown]

NARRATIVE: CASE EVENT DATE: 20220101
